FAERS Safety Report 6539786-9 (Version None)
Quarter: 2010Q1

REPORT INFORMATION
  Report Type: 
  Country: None (occurrence: None)
  Receive Date: 20100115
  Receipt Date: 20100104
  Transmission Date: 20100710
  Serious: Yes (Other)
  Sender: FDA-Public Use
  Company Number: FI-PFIZER INC-2009314147

PATIENT
  Age: 57 Year
  Sex: Male

DRUGS (4)
  1. ZELDOX [Suspect]
     Indication: SCHIZOPHRENIA
     Dosage: 80 MG, 2X/DAY
     Route: 048
     Dates: start: 20080901
  2. ZUCLOPENTHIXOL HYDROCHLORIDE [Suspect]
     Indication: PSYCHOTIC DISORDER
     Dosage: 25 MG, 1X/DAY
     Dates: end: 20090601
  3. SERDOLECT [Concomitant]
     Indication: PSYCHOTIC DISORDER
     Dosage: 12 MG DAILY
     Dates: start: 20090101, end: 20090101
  4. CLOZAPINE [Concomitant]
     Indication: PSYCHOTIC DISORDER
     Dosage: 37.5 MG DAILY
     Dates: start: 20090101

REACTIONS (10)
  - ALOPECIA [None]
  - DROOLING [None]
  - DRY MOUTH [None]
  - DYSARTHRIA [None]
  - GENITAL DISORDER MALE [None]
  - GYNAECOMASTIA [None]
  - MONOPLEGIA [None]
  - PSYCHOTIC DISORDER [None]
  - SOMNOLENCE [None]
  - TREMOR [None]
